FAERS Safety Report 25622562 (Version 1)
Quarter: 2025Q3

REPORT INFORMATION
  Report Type: Spontaneous
  Country: US (occurrence: US)
  Receive Date: 20250730
  Receipt Date: 20250730
  Transmission Date: 20251020
  Serious: No
  Sender: PFIZER
  Company Number: US-PFIZER INC-202500153303

PATIENT
  Sex: Female

DRUGS (1)
  1. PAXLOVID [Suspect]
     Active Substance: NIRMATRELVIR\RITONAVIR
     Indication: COVID-19 treatment

REACTIONS (8)
  - Tongue coated [Unknown]
  - Diarrhoea [Unknown]
  - Nodule [Unknown]
  - Product taste abnormal [Unknown]
  - Sleep disorder [Unknown]
  - Dizziness [Unknown]
  - Eating disorder [Unknown]
  - Condition aggravated [Unknown]
